FAERS Safety Report 6401267-0 (Version None)
Quarter: 2009Q4

REPORT INFORMATION
  Report Type: 
  Country: None (occurrence: None)
  Receive Date: 20091009
  Receipt Date: 20090928
  Transmission Date: 20100525
  Serious: Yes (Hospitalization)
  Sender: FDA-Public Use
  Company Number: 020543400A

PATIENT
  Sex: Female

DRUGS (7)
  1. COLGATE TOTAL-CLEAN MINT FLUORIDE TOOTHPASTE [Suspect]
     Indication: DENTAL PLAQUE
     Dosage: HEAD OF TB 3XDAY ORAL
     Route: 048
  2. COLGATE TOTAL-CLEAN MINT FLUORIDE TOOTHPASTE [Suspect]
     Indication: GINGIVITIS
     Dosage: HEAD OF TB 3XDAY ORAL
     Route: 048
  3. COLGATE TOTAL-CLEAN MINT FLUORIDE TOOTHPASTE [Suspect]
     Indication: PROPHYLAXIS
     Dosage: HEAD OF TB 3XDAY ORAL
     Route: 048
  4. CLLGATE CAVITY PROTECTION REGULAR (#3 LISTED IN H10) [Suspect]
     Indication: DENTAL CARIES
     Dosage: HEAD OF TB 3XDAY ORAL
     Route: 048
  5. CLLGATE CAVITY PROTECTION REGULAR (#3 LISTED IN H10) [Suspect]
     Indication: PROPHYLAXIS
     Dosage: HEAD OF TB 3XDAY ORAL
     Route: 048
  6. COLGATE TARTAR PROTECTION [Suspect]
     Indication: DENTAL CARIES
     Dosage: HEAD OF TB 3XDAY ORAL
     Route: 048
  7. COLGATE TARTAR PROTECTION [Suspect]
     Indication: PROPHYLAXIS
     Dosage: HEAD OF TB 3XDAY ORAL
     Route: 048

REACTIONS (3)
  - ANAPHYLACTIC REACTION [None]
  - MALAISE [None]
  - VIRAL INFECTION [None]
